FAERS Safety Report 6547174-4 (Version None)
Quarter: 2010Q1

REPORT INFORMATION
  Report Type: 
  Country: None (occurrence: None)
  Receive Date: 20100122
  Receipt Date: 20100122
  Transmission Date: 20100710
  Serious: Yes (Other)
  Sender: FDA-Public Use
  Company Number: GXKR2009DE04292

PATIENT
  Sex: Female
  Weight: 67 kg

DRUGS (1)
  1. LAMOTRIGIN HEXAL (NGX) [Suspect]
     Indication: EPILEPSY
     Dosage: 200 MG, QD
     Route: 048

REACTIONS (5)
  - CAESAREAN SECTION [None]
  - DRUG EXPOSURE DURING PREGNANCY [None]
  - NORMAL NEWBORN [None]
  - OEDEMA [None]
  - WEIGHT INCREASED [None]
